FAERS Safety Report 9323533 (Version 2)
Quarter: 2013Q3

REPORT INFORMATION
  Report Type: Spontaneous
  Country: US (occurrence: US)
  Receive Date: 20130603
  Receipt Date: 20130723
  Transmission Date: 20140515
  Serious: No
  Sender: FDA-Public Use
  Company Number: US-PFIZER INC-2013167021

PATIENT
  Age: 55 Year
  Sex: Male
  Weight: 104 kg

DRUGS (4)
  1. CHANTIX [Suspect]
     Indication: SMOKING CESSATION THERAPY
     Dosage: 0.5 MG, 1X/DAY
     Route: 048
     Dates: start: 201305, end: 201305
  2. CHANTIX [Suspect]
     Dosage: 0.5 MG, 2X/DAY
     Route: 048
     Dates: start: 201305
  3. DEPAKOTE [Suspect]
     Indication: CONVULSION
     Dosage: UNK
     Route: 048
  4. TEGRETOL [Suspect]
     Dosage: UNK
     Route: 048

REACTIONS (1)
  - Malaise [Not Recovered/Not Resolved]
